FAERS Safety Report 7053441-0 (Version None)
Quarter: 2010Q4

REPORT INFORMATION
  Report Type: 
  Country: None (occurrence: None)
  Receive Date: 20101013
  Receipt Date: 20101004
  Transmission Date: 20110411
  Serious: Yes (Other)
  Sender: FDA-Public Use
  Company Number: 2010SP039860

PATIENT
  Age: 27 Year
  Sex: Male
  Weight: 76 kg

DRUGS (2)
  1. REMERGIL (MIRTAZAPINE /01293201/) [Suspect]
     Indication: DEPRESSION
     Dosage: QD
     Dates: start: 20090901
  2. REMERGIL (MIRTAZAPINE /01293201/) [Suspect]
     Indication: INSOMNIA
     Dosage: QD
     Dates: start: 20090901

REACTIONS (1)
  - RESTLESS LEGS SYNDROME [None]
